FAERS Safety Report 22589508 (Version 1)
Quarter: 2023Q2

REPORT INFORMATION
  Report Type: Spontaneous
  Country: IN (occurrence: IN)
  Receive Date: 20230612
  Receipt Date: 20230612
  Transmission Date: 20230722
  Serious: Yes (Hospitalization, Other)
  Sender: FDA-Public Use
  Company Number: IN-PIRAMAL CRITICAL CARE LIMITED-2023-PPL-000029

PATIENT

DRUGS (12)
  1. SEVOFLURANE [Suspect]
     Active Substance: SEVOFLURANE
     Indication: Maintenance of anaesthesia
     Dosage: 1-2%
  2. SEVOFLURANE [Suspect]
     Active Substance: SEVOFLURANE
     Dosage: 2%
  3. FENTANYL [Suspect]
     Active Substance: FENTANYL
     Indication: Induction of anaesthesia
     Dosage: PREOXYGENATION FOR THREE MINUTES, WITH 100 MCG I.V
     Route: 042
  4. GLYCOPYRRONIUM [Suspect]
     Active Substance: GLYCOPYRRONIUM
     Indication: Premedication
     Dosage: 0.2 MG I.V
     Route: 042
  5. PROPOFOL [Suspect]
     Active Substance: PROPOFOL
     Indication: Induction of anaesthesia
     Dosage: PREOXYGENATION FOR THREE MINUTES, WITH INJ. PROPOFOL 100 MG I.V.
     Route: 042
  6. MIDAZOLAM [Suspect]
     Active Substance: MIDAZOLAM
     Indication: Premedication
     Dosage: 1 MG I.V.
     Route: 042
  7. ATRACURIUM [Suspect]
     Active Substance: ATRACURIUM
     Indication: Hypotonia
     Dosage: 30 MG I.V.
     Route: 042
  8. OXYGEN [Concomitant]
     Active Substance: OXYGEN
     Indication: Maintenance of anaesthesia
     Dosage: OXYGEN:AIR (50:50)
  9. OXYGEN [Concomitant]
     Active Substance: OXYGEN
     Indication: Mechanical ventilation
     Dosage: 100%
  10. OXYGEN [Concomitant]
     Active Substance: OXYGEN
     Dosage: 100%
  11. OXYGEN [Concomitant]
     Active Substance: OXYGEN
     Dosage: 100%
  12. OXYGEN [Concomitant]
     Active Substance: OXYGEN
     Dosage: 10 L/MIN

REACTIONS (2)
  - Pneumothorax [Recovered/Resolved]
  - Bronchospasm [Recovered/Resolved]
